FAERS Safety Report 12798671 (Version 1)
Quarter: 2016Q3

REPORT INFORMATION
  Report Type: Report from Study
  Country: US (occurrence: US)
  Receive Date: 20160930
  Receipt Date: 20160930
  Transmission Date: 20161109
  Serious: Yes (Death)
  Sender: FDA-Public Use
  Company Number: US-JNJFOC-20160926202

PATIENT
  Age: 74 Year
  Sex: Female
  Weight: 97.52 kg

DRUGS (1)
  1. REMICADE [Suspect]
     Active Substance: INFLIXIMAB
     Indication: COLITIS ULCERATIVE
     Route: 042
     Dates: start: 2011, end: 20130713

REACTIONS (6)
  - Infection [Fatal]
  - Oesophageal carcinoma [Fatal]
  - Product use issue [Unknown]
  - Pulmonary embolism [Unknown]
  - Staphylococcal infection [Unknown]
  - Off label use [Unknown]

NARRATIVE: CASE EVENT DATE: 201307
